FAERS Safety Report 16525149 (Version 1)
Quarter: 2019Q3

REPORT INFORMATION
  Report Type: Spontaneous
  Country: US (occurrence: US)
  Receive Date: 20190703
  Receipt Date: 20190703
  Transmission Date: 20191004
  Serious: No
  Sender: FDA-Public Use
  Company Number: US-GLAXOSMITHKLINE-US2019AMR118273

PATIENT
  Sex: Female

DRUGS (1)
  1. NUCALA [Suspect]
     Active Substance: MEPOLIZUMAB
     Indication: PRODUCT USED FOR UNKNOWN INDICATION
     Dosage: UNK
     Route: 058
     Dates: start: 201903

REACTIONS (7)
  - Ill-defined disorder [Unknown]
  - Malaise [Unknown]
  - Headache [Unknown]
  - Viral infection [Unknown]
  - Pain [Unknown]
  - Nausea [Unknown]
  - Bed rest [Unknown]
